FAERS Safety Report 5721936-5 (Version None)
Quarter: 2008Q2

REPORT INFORMATION
  Report Type: 
  Country: None (occurrence: None)
  Receive Date: 20080429
  Receipt Date: 20080417
  Transmission Date: 20081010
  Serious: Yes (Other)
  Sender: FDA-Public Use
  Company Number: AU-PFIZER INC-2008024239

PATIENT
  Sex: Female
  Weight: 70 kg

DRUGS (16)
  1. LYRICA [Suspect]
     Indication: NEURALGIA
     Route: 048
     Dates: start: 20080312, end: 20080312
  2. LYRICA [Suspect]
     Indication: BACK PAIN
  3. LYRICA [Suspect]
     Indication: SCIATICA
  4. ACETAMINOPHEN [Concomitant]
  5. ENDONE [Concomitant]
  6. OXYCONTIN [Concomitant]
  7. WARFARIN SODIUM [Concomitant]
  8. ASTRIX [Concomitant]
  9. PREDNISOLONE [Concomitant]
  10. CALCIUM [Concomitant]
  11. RAMACE [Concomitant]
  12. TAZAC [Concomitant]
  13. FISH OIL [Concomitant]
  14. TRITACE [Concomitant]
  15. PROCHLORPERAZINE MALEATE [Concomitant]
  16. OSTELIN [Concomitant]

REACTIONS (11)
  - ARTHRALGIA [None]
  - ATAXIA [None]
  - COORDINATION ABNORMAL [None]
  - DISTURBANCE IN ATTENTION [None]
  - DIZZINESS [None]
  - DRUG INEFFECTIVE [None]
  - DYSARTHRIA [None]
  - DYSSTASIA [None]
  - JOINT SWELLING [None]
  - NAUSEA [None]
  - VOMITING [None]
